FAERS Safety Report 12486144 (Version 1)
Quarter: 2016Q2

REPORT INFORMATION
  Report Type: Spontaneous
  Country: IT (occurrence: IT)
  Receive Date: 20160621
  Receipt Date: 20160621
  Transmission Date: 20160815
  Serious: Yes (Hospitalization)
  Sender: FDA-Public Use
  Company Number: IT-ELI_LILLY_AND_COMPANY-IT201606005209

PATIENT
  Sex: Female
  Weight: 50 kg

DRUGS (6)
  1. CISPLATIN. [Suspect]
     Active Substance: CISPLATIN
     Indication: LUNG ADENOCARCINOMA
     Dosage: 90 MG, UNKNOWN
     Route: 042
     Dates: start: 20160523, end: 20160523
  2. GEMCITABINE HYDROCHLORIDE. [Suspect]
     Active Substance: GEMCITABINE HYDROCHLORIDE
     Indication: LUNG ADENOCARCINOMA METASTATIC
     Dosage: 1800 MG, CYCLICAL
     Route: 042
     Dates: start: 20160523, end: 20160523
  3. ASPIRINETTA [Concomitant]
     Active Substance: ASPIRIN
     Indication: PRODUCT USED FOR UNKNOWN INDICATION
     Dosage: UNK, UNKNOWN
     Route: 065
  4. IVEMEND [Suspect]
     Active Substance: FOSAPREPITANT DIMEGLUMINE
     Indication: LUNG ADENOCARCINOMA
     Dosage: 150 MG, UNKNOWN
     Route: 042
     Dates: start: 20160523, end: 20160523
  5. DAPAROX                            /00830802/ [Concomitant]
     Active Substance: PAROXETINE HYDROCHLORIDE
     Indication: PRODUCT USED FOR UNKNOWN INDICATION
     Dosage: UNK, UNKNOWN
     Route: 065
  6. VERAPAMIL HYDROCHLOIRDE [Concomitant]
     Indication: PRODUCT USED FOR UNKNOWN INDICATION
     Dosage: 240 MG, UNKNOWN
     Route: 048

REACTIONS (4)
  - Oliguria [Recovered/Resolved]
  - Cardiac failure [Recovered/Resolved]
  - Confusional state [Recovered/Resolved]
  - Respiratory failure [Recovered/Resolved]
